FAERS Safety Report 6243837-9 (Version None)
Quarter: 2009Q2

REPORT INFORMATION
  Report Type: 
  Country: None (occurrence: None)
  Receive Date: 20090624
  Receipt Date: 20090612
  Transmission Date: 20091009
  Serious: Yes (Other)
  Sender: FDA-Public Use
  Company Number: GB-JNJCH-2009017161

PATIENT
  Age: 42 Year
  Sex: Female

DRUGS (2)
  1. NON-DROWSY SUDAFED DECONGESTANT NASAL SPRAY [Suspect]
     Indication: DRUG USE FOR UNKNOWN INDICATION
     Dosage: TEXT:UNSPECIFIED AS NECESSARY DAILY
     Route: 045
  2. FEMODENE [Concomitant]
     Indication: DRUG USE FOR UNKNOWN INDICATION
     Dosage: TEXT:UNKNOWN
     Route: 065

REACTIONS (2)
  - EPISTAXIS [None]
  - NASAL SEPTUM PERFORATION [None]
